FAERS Safety Report 24691266 (Version 2)
Quarter: 2025Q2

REPORT INFORMATION
  Report Type: Spontaneous
  Country: JP (occurrence: JP)
  Receive Date: 20241203
  Receipt Date: 20250623
  Transmission Date: 20250717
  Serious: Yes (Life-Threatening, Hospitalization, Other)
  Sender: ELI LILLY AND COMPANY
  Company Number: JP-ELI_LILLY_AND_COMPANY-JP202411000093

PATIENT
  Age: 59 Year
  Sex: Male
  Weight: 50 kg

DRUGS (2)
  1. CYRAMZA [Suspect]
     Active Substance: RAMUCIRUMAB
     Indication: Gastric cancer recurrent
     Route: 041
     Dates: start: 20231026, end: 20240815
  2. ABRAXANE [Concomitant]
     Active Substance: PACLITAXEL
     Indication: Gastric cancer recurrent
     Route: 041
     Dates: start: 20231026, end: 20240815

REACTIONS (6)
  - Tumour perforation [Recovered/Resolved with Sequelae]
  - Peritonitis [Recovered/Resolved with Sequelae]
  - Septic shock [Unknown]
  - Disseminated intravascular coagulation [Unknown]
  - Ileus paralytic [Unknown]
  - Urinary tract infection [Unknown]

NARRATIVE: CASE EVENT DATE: 20240801
